FAERS Safety Report 10133619 (Version 2)
Quarter: 2014Q2

REPORT INFORMATION
  Report Type: Spontaneous
  Country: JP (occurrence: JP)
  Receive Date: 20140428
  Receipt Date: 20140616
  Transmission Date: 20141212
  Serious: Yes (Other)
  Sender: FDA-Public Use
  Company Number: PHHY2014JP050714

PATIENT
  Age: 84 Year
  Sex: Male

DRUGS (1)
  1. DESFERAL [Suspect]
     Indication: IRON OVERLOAD
     Dosage: 1500 MG, QW (OVER A PERIOD OF 2 HOURS)
     Route: 042
     Dates: start: 20140415, end: 20140415

REACTIONS (1)
  - Convulsion [Recovered/Resolved]
